FAERS Safety Report 18860604 (Version 2)
Quarter: 2021Q1

REPORT INFORMATION
  Report Type: Spontaneous
  Country: US (occurrence: US)
  Receive Date: 20210208
  Receipt Date: 20210212
  Transmission Date: 20210420
  Serious: Yes (Hospitalization)
  Sender: FDA-Public Use
  Company Number: US-PFIZER INC-2021081558

PATIENT
  Age: 37 Year
  Sex: Male
  Weight: 81.64 kg

DRUGS (3)
  1. VANCOMYCIN [Concomitant]
     Active Substance: VANCOMYCIN
     Dosage: UNK
     Route: 042
  2. ZYVOX [Suspect]
     Active Substance: LINEZOLID
     Indication: OSTEOMYELITIS BACTERIAL
     Dosage: 600 MG, TWICE A DAY (EVERY 12 HOURS)
     Route: 048
  3. ZYVOX [Suspect]
     Active Substance: LINEZOLID
     Indication: MYOSITIS

REACTIONS (2)
  - Off label use [Unknown]
  - Diabetic ulcer [Unknown]
